FAERS Safety Report 24334234 (Version 2)
Quarter: 2024Q4

REPORT INFORMATION
  Report Type: Spontaneous
  Country: US (occurrence: US)
  Receive Date: 20240918
  Receipt Date: 20241029
  Transmission Date: 20250115
  Serious: No
  Sender: EISAI
  Company Number: US-Eisai-EC-2024-173108

PATIENT
  Age: 76 Year
  Sex: Female
  Weight: 51.1 kg

DRUGS (1)
  1. LEQEMBI [Suspect]
     Active Substance: LECANEMAB-IRMB
     Indication: Dementia Alzheimer^s type
     Route: 042
     Dates: start: 20240506

REACTIONS (1)
  - Infusion related reaction [Recovered/Resolved]

NARRATIVE: CASE EVENT DATE: 20240101
